FAERS Safety Report 21138621 (Version 2)
Quarter: 2022Q3

REPORT INFORMATION
  Report Type: Other
  Country: AU (occurrence: None)
  Receive Date: 20220727
  Receipt Date: 20220802
  Transmission Date: 20221027
  Serious: Yes (Other)
  Sender: FDA-Public Use
  Company Number: AU-ROCHE-3143643

PATIENT
  Sex: Female

DRUGS (2)
  1. OCREVUS [Suspect]
     Active Substance: OCRELIZUMAB
     Indication: Multiple sclerosis
     Route: 042
     Dates: start: 20220715
  2. OCREVUS [Suspect]
     Active Substance: OCRELIZUMAB
     Dosage: INITIAL DOSE ABOUT 1-2 YEARS AGO
     Route: 065

REACTIONS (3)
  - COVID-19 [Recovered/Resolved]
  - Hypoaesthesia [Recovering/Resolving]
  - Joint swelling [Recovering/Resolving]
